FAERS Safety Report 11090161 (Version 1)
Quarter: 2015Q2

REPORT INFORMATION
  Report Type: Report from Study
  Country: JP (occurrence: JP)
  Receive Date: 20150505
  Receipt Date: 20150505
  Transmission Date: 20150821
  Serious: Yes (Death, Hospitalization)
  Sender: FDA-Public Use
  Company Number: JP-SA-2015SA058323

PATIENT
  Age: 38 Year
  Sex: Male
  Weight: 74.7 kg

DRUGS (21)
  1. CYCLOSPORINE. [Suspect]
     Active Substance: CYCLOSPORINE
     Indication: ACUTE GRAFT VERSUS HOST DISEASE
     Route: 065
     Dates: start: 20130205, end: 20130728
  2. LASIX [Concomitant]
     Active Substance: FUROSEMIDE
     Indication: OEDEMA
     Dates: start: 20120321, end: 20130727
  3. VOLTAREN [Concomitant]
     Active Substance: DICLOFENAC SODIUM
     Indication: GRAFT VERSUS HOST DISEASE
     Dates: end: 20130715
  4. HUMALOG [Concomitant]
     Active Substance: INSULIN LISPRO
     Indication: DIABETES MELLITUS
     Dates: start: 20130628, end: 20130703
  5. TAKEPRON [Concomitant]
     Active Substance: LANSOPRAZOLE
     Indication: PROPHYLAXIS AGAINST GASTROINTESTINAL ULCER
     Dates: end: 20130703
  6. CRAVIT [Concomitant]
     Active Substance: LEVOFLOXACIN
     Indication: PROPHYLAXIS
     Dates: start: 20130514, end: 20130714
  7. LANTUS [Concomitant]
     Active Substance: INSULIN GLARGINE
     Indication: DIABETES MELLITUS
     Dates: start: 20130628, end: 20130703
  8. THYMOGLOBULINE [Suspect]
     Active Substance: LAPINE T-LYMPHOCYTE IMMUNE GLOBULIN
     Indication: GRAFT VERSUS HOST DISEASE
     Route: 042
     Dates: start: 20130513, end: 20130517
  9. DIART [Concomitant]
     Active Substance: AZOSEMIDE
     Indication: OEDEMA
     Dates: start: 20130418, end: 20130713
  10. HUMULIN R [Concomitant]
     Active Substance: INSULIN HUMAN
     Indication: DIABETES MELLITUS
     Dates: start: 20130426, end: 20130727
  11. CRAVIT [Concomitant]
     Active Substance: LEVOFLOXACIN
     Indication: INFECTION PROPHYLAXIS
     Dates: start: 20130514, end: 20130714
  12. PREDNISOLONE. [Suspect]
     Active Substance: PREDNISOLONE
     Route: 065
  13. MYCOPHENOLATE MOFETIL. [Suspect]
     Active Substance: MYCOPHENOLATE MOFETIL
     Indication: ACUTE GRAFT VERSUS HOST DISEASE
     Route: 065
     Dates: start: 20130325, end: 20130728
  14. BAKTAR [Concomitant]
     Active Substance: SULFAMETHOXAZOLE\TRIMETHOPRIM
     Indication: INFECTION PROPHYLAXIS
     Dates: end: 20130726
  15. TRANSAMIN [Concomitant]
     Active Substance: TRANEXAMIC ACID
     Indication: GRAFT VERSUS HOST DISEASE
     Dates: start: 20120506, end: 20130715
  16. ZETIA [Concomitant]
     Active Substance: EZETIMIBE
     Indication: GRAFT VERSUS HOST DISEASE
     Dates: start: 20130515, end: 20130703
  17. ITRIZOLE [Concomitant]
     Active Substance: ITRACONAZOLE
     Indication: INFECTION PROPHYLAXIS
     Dosage: ORAL SOLUTION 1%
     Route: 048
     Dates: start: 20120319, end: 20130728
  18. FRANDOL TAPE [Concomitant]
     Indication: CHEST PAIN
     Dates: start: 20130508, end: 20130728
  19. ZOVIRAX [Concomitant]
     Active Substance: ACYCLOVIR
     Indication: INFECTION PROPHYLAXIS
     Dates: start: 20120705, end: 20130728
  20. FOSAMAX [Concomitant]
     Active Substance: ALENDRONATE SODIUM
     Indication: OSTEOPOROSIS PROPHYLAXIS
     Dates: start: 20130228, end: 20130711
  21. URSO [Concomitant]
     Active Substance: URSODIOL
     Indication: GRAFT VERSUS HOST DISEASE
     Dates: start: 20120705, end: 20130724

REACTIONS (7)
  - Diarrhoea [Recovering/Resolving]
  - Abdominal pain lower [Not Recovered/Not Resolved]
  - Bronchopulmonary aspergillosis [Not Recovered/Not Resolved]
  - Hepatic function abnormal [Not Recovered/Not Resolved]
  - Pancytopenia [Not Recovered/Not Resolved]
  - Post transplant lymphoproliferative disorder [Fatal]
  - Renal impairment [Not Recovered/Not Resolved]

NARRATIVE: CASE EVENT DATE: 20130514
